FAERS Safety Report 13269136 (Version 2)
Quarter: 2017Q2

REPORT INFORMATION
  Report Type: Report from Study
  Country: US (occurrence: US)
  Receive Date: 20170224
  Receipt Date: 20170509
  Transmission Date: 20170830
  Serious: Yes (Other)
  Sender: FDA-Public Use
  Company Number: US-AMGEN-USASL2017025452

PATIENT
  Age: 60 Year
  Sex: Female

DRUGS (4)
  1. ENBREL [Suspect]
     Active Substance: ETANERCEPT
     Indication: PSORIATIC ARTHROPATHY
     Dosage: UNK
     Route: 065
  2. ENBREL [Suspect]
     Active Substance: ETANERCEPT
     Dosage: 25 MG, 2 TIMES/WK
     Route: 065
  3. HUMIRA [Concomitant]
     Active Substance: ADALIMUMAB
     Dosage: UNK
     Dates: end: 201302
  4. CORTISONE [Concomitant]
     Active Substance: CORTISONE\HYDROCORTISONE
     Dosage: UNK
     Dates: start: 201606

REACTIONS (14)
  - Pneumonia [Recovered/Resolved]
  - Injection site pain [Unknown]
  - Psoriatic arthropathy [Unknown]
  - Pain [Unknown]
  - Basal cell carcinoma [Recovering/Resolving]
  - Asthma [Recovered/Resolved]
  - Viral upper respiratory tract infection [Recovered/Resolved]
  - Drug dose omission [Unknown]
  - Drug effect decreased [Unknown]
  - Condition aggravated [Unknown]
  - Osteoarthritis [Unknown]
  - Immunodeficiency [Recovered/Resolved]
  - Malaise [Recovered/Resolved]
  - Injection site bruising [Recovered/Resolved]

NARRATIVE: CASE EVENT DATE: 2013
